FAERS Safety Report 9511709 (Version 1)
Quarter: 2013Q1

REPORT INFORMATION
  Report Type: Spontaneous
  Country: US (occurrence: None)
  Receive Date: 20130305
  Receipt Date: 20130305
  Transmission Date: 20140127
  Serious: Yes (Hospitalization)
  Sender: FDA-Public Use
  Company Number: 163-21880-12103455

PATIENT
  Age: 86 Year
  Sex: Male
  Weight: 86.18 kg

DRUGS (2)
  1. REVLIMID [Suspect]
     Indication: MYELODYSPLASTIC SYNDROME
     Dosage: 5 MG, 1 IN 1 D, PO
     Route: 048
     Dates: start: 20121005
  2. FENTANYL (FENTANYL) (UNKNOWN) (FENTANYL) [Concomitant]

REACTIONS (4)
  - Pyrexia [None]
  - Haemoglobin decreased [None]
  - Muscle spasms [None]
  - Dyspnoea [None]
